FAERS Safety Report 20390439 (Version 1)
Quarter: 2022Q1

REPORT INFORMATION
  Report Type: Spontaneous
  Country: US (occurrence: US)
  Receive Date: 20220128
  Receipt Date: 20220128
  Transmission Date: 20220424
  Serious: No
  Sender: FDA-Public Use
  Company Number: US-ALLERGAN-2115449US

PATIENT
  Age: 32 Year
  Sex: Female

DRUGS (1)
  1. BOTOX COSMETIC [Suspect]
     Active Substance: ONABOTULINUMTOXINA
     Indication: Skin wrinkling
     Dosage: UNK, SINGLE
     Dates: start: 20210414, end: 20210414

REACTIONS (6)
  - Dizziness [Unknown]
  - Multiple use of single-use product [Unknown]
  - Injection site swelling [Unknown]
  - Injection site pain [Unknown]
  - Hypersensitivity [Unknown]
  - Product quality issue [Unknown]

NARRATIVE: CASE EVENT DATE: 20210414
